FAERS Safety Report 8188463-X (Version None)
Quarter: 2012Q1

REPORT INFORMATION
  Report Type: 
  Country: None (occurrence: None)
  Receive Date: 20120306
  Receipt Date: 20120301
  Transmission Date: 20120608
  Serious: Yes (Hospitalization)
  Sender: FDA-Public Use
  Company Number: PHHY2011AR113416

PATIENT
  Sex: Female

DRUGS (1)
  1. DIOVAN HCT [Suspect]
     Indication: BLOOD PRESSURE
     Dosage: 1 DF X (160/? MG), DAILY
     Dates: start: 20111221

REACTIONS (4)
  - CARDIOVASCULAR DISORDER [None]
  - DIZZINESS [None]
  - EMOTIONAL DISORDER [None]
  - ASTHENIA [None]
